FAERS Safety Report 9746539 (Version 1)
Quarter: 2013Q4

REPORT INFORMATION
  Report Type: Spontaneous
  Country: US (occurrence: None)
  Receive Date: 20131209
  Receipt Date: 20131209
  Transmission Date: 20140711
  Serious: Yes (Other)
  Sender: FDA-Public Use
  Company Number: None

PATIENT
  Age: 17 Year
  Sex: Male

DRUGS (2)
  1. EXJADE 500MG NOVARTIS [Suspect]
     Indication: IRON OVERLOAD
     Route: 048
     Dates: start: 20120607, end: 20131202
  2. EXJADE 500MG NOVARTIS [Suspect]
     Indication: THALASSAEMIA
     Route: 048
     Dates: start: 20120607, end: 20131202

REACTIONS (1)
  - Nausea [None]
